FAERS Safety Report 7346471-2 (Version None)
Quarter: 2011Q1

REPORT INFORMATION
  Report Type: 
  Country: None (occurrence: None)
  Receive Date: 20110311
  Receipt Date: 20110302
  Transmission Date: 20110831
  Serious: Yes (Hospitalization)
  Sender: FDA-Public Use
  Company Number: GB-JNJFOC-20110302667

PATIENT
  Sex: Female
  Weight: 52.7 kg

DRUGS (14)
  1. ALLOPURINOL [Concomitant]
     Indication: GOUT
     Route: 048
  2. GLICLAZIDE [Concomitant]
     Indication: DIABETES MELLITUS
     Route: 048
  3. AMLODIPINE [Concomitant]
     Indication: HYPERTENSION
     Route: 048
  4. COTRIM [Concomitant]
     Indication: PROPHYLAXIS
     Route: 048
  5. SIMVASTATIN [Concomitant]
     Indication: HYPERCHOLESTEROLAEMIA
     Route: 048
  6. ALFACALCIDOL [Concomitant]
     Indication: MINERAL SUPPLEMENTATION
     Route: 048
  7. DEXAMETHASONE [Concomitant]
     Indication: MULTIPLE MYELOMA
     Route: 048
  8. VELCADE [Suspect]
     Indication: MULTIPLE MYELOMA
     Route: 040
  9. ALLOPURINOL [Concomitant]
     Indication: ARTHRITIS
     Route: 048
  10. ACYCLOVIR [Concomitant]
     Indication: PROPHYLAXIS
     Route: 048
  11. LEVOTHYROXINE SODIUM [Concomitant]
     Indication: HYPOTHYROIDISM
     Route: 048
  12. DOXORUBICIN [Suspect]
     Indication: MULTIPLE MYELOMA
     Route: 042
  13. ATENOLOL [Concomitant]
     Indication: HYPERTENSION
     Route: 048
  14. METOCLOPRAMIDE HCL [Concomitant]
     Indication: NAUSEA
     Route: 048

REACTIONS (1)
  - TOXICITY TO VARIOUS AGENTS [None]
